FAERS Safety Report 4954751-0 (Version None)
Quarter: 2006Q1

REPORT INFORMATION
  Report Type: 
  Country: None (occurrence: None)
  Receive Date: 20060322
  Receipt Date: 20060317
  Transmission Date: 20060701
  Serious: Yes (Other)
  Sender: FDA-Public Use
  Company Number: 200610392BYL

PATIENT
  Age: 85 Year
  Sex: Female

DRUGS (1)
  1. AVELOX [Suspect]
     Indication: PNEUMONIA
     Dosage: 400 MG, QD, ORAL
     Route: 048

REACTIONS (2)
  - PURPURA [None]
  - RENAL DISORDER [None]
